FAERS Safety Report 5970364 (Version 3)
Quarter: 2012Q4

REPORT INFORMATION
  Report Type: 
  Country: US (occurrence: US)
  Receive Date: 20060127
  Receipt Date: 20121114
  Transmission Date: 20130627
  Serious: Yes (Hospitalization)
  Sender: FDA-Public Use
  Company Number: US-JNJFOC-20060104937

PATIENT
  Age: 80 Year
  Sex: Female

DRUGS (7)
  1. IBUPROFEN [Suspect]
     Indication: OSTEOARTHRITIS
     Route: 048
     Dates: start: 200509, end: 200511
  2. DAYPRO [Suspect]
     Indication: OSTEOARTHRITIS
     Route: 048
     Dates: start: 1997, end: 200511
  3. OXYTROL [Suspect]
     Indication: URINARY INCONTINENCE
     Dates: start: 200511
  4. OXYTROL [Suspect]
     Indication: URINARY INCONTINENCE
     Dates: start: 2003, end: 200511
  5. DITROPAN XL [Concomitant]
     Indication: URINARY INCONTINENCE
     Dates: start: 2003
  6. ROBINUL [Concomitant]
     Dates: start: 1990
  7. PROCHLORPERAZINE [Concomitant]
     Dates: start: 1990

REACTIONS (3)
  - Colitis ulcerative [Recovered/Resolved]
  - Irritable bowel syndrome [Recovered/Resolved]
  - Haematochezia [Recovered/Resolved]
